FAERS Safety Report 19865942 (Version 1)
Quarter: 2021Q3

REPORT INFORMATION
  Report Type: Spontaneous
  Country: US (occurrence: US)
  Receive Date: 20210922
  Receipt Date: 20210922
  Transmission Date: 20211014
  Serious: Yes (Other)
  Sender: FDA-Public Use
  Company Number: US-009507513-2109USA004883

PATIENT
  Sex: Male

DRUGS (1)
  1. JANUVIA [Suspect]
     Active Substance: SITAGLIPTIN PHOSPHATE
     Dosage: 100 MILLIGRAM, ONCE A DAY
     Route: 048

REACTIONS (6)
  - Illness [Unknown]
  - Nausea [Unknown]
  - Prostate cancer [Unknown]
  - Vomiting [Unknown]
  - Diarrhoea [Unknown]
  - Product dose omission issue [Unknown]
